FAERS Safety Report 5232471-5 (Version None)
Quarter: 2007Q1

REPORT INFORMATION
  Report Type: 
  Country: None (occurrence: None)
  Receive Date: 20070207
  Receipt Date: 20070130
  Transmission Date: 20070707
  Serious: Yes (Disabling, Other)
  Sender: FDA-Public Use
  Company Number: US-PURDUE-USA_2007_0026360

PATIENT
  Age: 32 Year
  Sex: Male

DRUGS (4)
  1. OXYCODONE HCL [Suspect]
     Indication: DRUG ABUSER
     Dosage: UNK UNK, UNK
     Route: 065
  2. METHADONE HCL [Suspect]
     Indication: DRUG DEPENDENCE
     Dosage: UNK UNK, UNK
     Route: 065
  3. COCAINE [Suspect]
     Indication: DRUG ABUSER
     Dosage: UNK UNK, UNK
     Route: 065
  4. MARIJUANA [Suspect]
     Indication: DRUG ABUSER
     Dosage: UNK UNK, UNK
     Route: 065

REACTIONS (3)
  - HOMICIDE [None]
  - ROAD TRAFFIC ACCIDENT [None]
  - SUBSTANCE ABUSE [None]
